FAERS Safety Report 10648986 (Version 1)
Quarter: 2014Q4

REPORT INFORMATION
  Report Type: Spontaneous
  Country: US (occurrence: None)
  Receive Date: 20141205
  Receipt Date: 20141205
  Transmission Date: 20150529
  Serious: No
  Sender: FDA-Public Use
  Company Number: 163-POMAL-14085059

PATIENT
  Age: 68 Year
  Sex: Female

DRUGS (9)
  1. CALADRYL (CALADRYL/00138901/) UKNOWN) [Concomitant]
  2. BENDARYL ALLERGY(BENADRYL ALLERGY/01454801/)(UKNOWN) [Concomitant]
  3. FLOVENT HFA (FLUTICASONE PROPIONATE)(UKNOWN) [Concomitant]
  4. KLONOPIN (CLONAZEPAM)(UKNOWN) [Concomitant]
  5. PREDNISOLONE ACETATE (PREDNISOLONE ACETATE) [Concomitant]
  6. IPRATROPIUM BROMIDE (IPRATROPIUM BROMIDE) [Concomitant]
  7. POMALYST [Suspect]
     Active Substance: POMALIDOMIDE
     Indication: PLASMA CELL MYELOMA
     Dosage: 4 MG, 21 IN 21 D, PO
     Route: 048
     Dates: start: 20140807
  8. ULTRAM(TRAMADOL HYDROCHLORIDE)(UKNOWN) [Concomitant]
  9. NEURONTIN (GABAPENTIN)(UKNOWN) [Concomitant]

REACTIONS (2)
  - Urticaria [None]
  - Wheezing [None]

NARRATIVE: CASE EVENT DATE: 20140811
